FAERS Safety Report 7654815-7 (Version None)
Quarter: 2011Q3

REPORT INFORMATION
  Report Type: 
  Country: None (occurrence: None)
  Receive Date: 20110728
  Receipt Date: 20110713
  Transmission Date: 20111222
  Serious: Yes (Hospitalization)
  Sender: FDA-Public Use
  Company Number: AUR-APL-2011-04275

PATIENT
  Age: 58 Year
  Sex: Male

DRUGS (14)
  1. SEROQUEL XR [Suspect]
     Indication: PRODUCT USED FOR UNKNOWN INDICATION
     Dosage: 200-600 MG/D, ORAL
     Route: 048
     Dates: start: 20100628, end: 20100804
  2. SEROQUEL XR [Suspect]
     Indication: PRODUCT USED FOR UNKNOWN INDICATION
     Dosage: 200-600 MG/D, ORAL
     Route: 048
     Dates: start: 20100805, end: 20100811
  3. SEROQUEL XR [Suspect]
     Indication: PRODUCT USED FOR UNKNOWN INDICATION
     Dosage: 200-600 MG/D, ORAL
     Route: 048
     Dates: start: 20100522, end: 20100602
  4. SEROQUEL XR [Suspect]
     Indication: PRODUCT USED FOR UNKNOWN INDICATION
     Dosage: 200-600 MG/D, ORAL
     Route: 048
     Dates: start: 20100602, end: 20100622
  5. SEROQUEL XR [Suspect]
     Indication: PRODUCT USED FOR UNKNOWN INDICATION
     Dosage: 200-600 MG/D, ORAL
     Route: 048
     Dates: start: 20100622, end: 20100627
  6. AKINETON [Suspect]
     Indication: PRODUCT USED FOR UNKNOWN INDICATION
     Dosage: 2, 4  MG (2 MG, 1 IN 1 D), ORAL
     Route: 048
     Dates: start: 20100710
  7. AKINETON [Suspect]
     Indication: PRODUCT USED FOR UNKNOWN INDICATION
     Dosage: 2, 4  MG (2 MG, 1 IN 1 D), ORAL
     Route: 048
     Dates: start: 20100625, end: 20100709
  8. DIAZEPAM [Concomitant]
  9. SERTRALINE HYDROCHLORIDE [Suspect]
     Indication: PRODUCT USED FOR UNKNOWN INDICATION
     Dosage: 50, 100, 150, 200  MG (50 MG, 1 IN 1 D), ORAL
     Route: 048
     Dates: start: 20100708, end: 20100712
  10. SERTRALINE HYDROCHLORIDE [Suspect]
     Indication: PRODUCT USED FOR UNKNOWN INDICATION
     Dosage: 50, 100, 150, 200  MG (50 MG, 1 IN 1 D), ORAL
     Route: 048
     Dates: start: 20100527, end: 20100608
  11. SERTRALINE HYDROCHLORIDE [Suspect]
     Indication: PRODUCT USED FOR UNKNOWN INDICATION
     Dosage: 50, 100, 150, 200  MG (50 MG, 1 IN 1 D), ORAL
     Route: 048
     Dates: start: 20100609, end: 20100707
  12. SERTRALINE HYDROCHLORIDE [Suspect]
     Indication: PRODUCT USED FOR UNKNOWN INDICATION
     Dosage: 50, 100, 150, 200  MG (50 MG, 1 IN 1 D), ORAL
     Route: 048
     Dates: start: 20100805, end: 20100806
  13. SERTRALINE HYDROCHLORIDE [Suspect]
     Indication: PRODUCT USED FOR UNKNOWN INDICATION
     Dosage: 50, 100, 150, 200  MG (50 MG, 1 IN 1 D), ORAL
     Route: 048
     Dates: start: 20100713, end: 20100804
  14. SERTRALINE HYDROCHLORIDE [Suspect]
     Indication: PRODUCT USED FOR UNKNOWN INDICATION
     Dosage: 50, 100, 150, 200  MG (50 MG, 1 IN 1 D), ORAL
     Route: 048
     Dates: start: 20100807

REACTIONS (2)
  - ANTIPSYCHOTIC DRUG LEVEL ABOVE THERAPEUTIC [None]
  - DELIRIUM [None]
